FAERS Safety Report 18770700 (Version 1)
Quarter: 2021Q1

REPORT INFORMATION
  Report Type: Spontaneous
  Country: CN (occurrence: CN)
  Receive Date: 20210122
  Receipt Date: 20210122
  Transmission Date: 20210419
  Serious: Yes (Other)
  Sender: FDA-Public Use
  Company Number: CN-ROCHE-2753379

PATIENT
  Age: 57 Year
  Sex: Female

DRUGS (5)
  1. CARBOPLATIN. [Concomitant]
     Active Substance: CARBOPLATIN
     Indication: HER2 POSITIVE BREAST CANCER
     Dates: start: 20201118
  2. DOCETAXEL. [Concomitant]
     Active Substance: DOCETAXEL
     Dosage: DATE OF TREATMENT: 10/DEC/2020, 5/JAN/2021
  3. HERCEPTIN [Suspect]
     Active Substance: TRASTUZUMAB
     Indication: HER2 POSITIVE BREAST CANCER
     Dosage: DATE OF TREATMENT: 10/DEC/2020, 5/JAN/2021
     Route: 065
     Dates: start: 20201118
  4. PERJETA [Suspect]
     Active Substance: PERTUZUMAB
     Indication: HER2 POSITIVE BREAST CANCER
     Dosage: DATE OF TREATMENT: 10/DEC/2020, 5/JAN/2021
     Route: 065
     Dates: start: 20201118
  5. DOCETAXEL. [Concomitant]
     Active Substance: DOCETAXEL
     Indication: HER2 POSITIVE BREAST CANCER
     Dates: start: 20201118

REACTIONS (5)
  - Malaise [Unknown]
  - Asthenia [Unknown]
  - Hyponatraemia [Unknown]
  - Decreased appetite [Unknown]
  - Myelosuppression [Unknown]
